FAERS Safety Report 18685030 (Version 1)
Quarter: 2020Q4

REPORT INFORMATION
  Report Type: Report from Study
  Country: CA (occurrence: CA)
  Receive Date: 20201230
  Receipt Date: 20201230
  Transmission Date: 20210114
  Serious: Yes (Other)
  Sender: FDA-Public Use
  Company Number: CA-REGENERON PHARMACEUTICALS, INC.-2020-96447

PATIENT

DRUGS (4)
  1. CEMIPLIMAB [Suspect]
     Active Substance: CEMIPLIMAB
     Indication: CERVIX CARCINOMA
     Dosage: 350 MG, Q3W
     Route: 042
     Dates: start: 20200609, end: 20200922
  2. HYDROCORTISONE. [Concomitant]
     Active Substance: HYDROCORTISONE
     Indication: ADVERSE EVENT
     Dosage: 1 %, Q8H
     Route: 061
     Dates: start: 20200720
  3. AVEENO HYDROCORTISONE ANTI ITCH CREAM [Concomitant]
     Indication: ADVERSE EVENT
     Dosage: UNK, AS NECESSARY
     Route: 061
     Dates: start: 20200817
  4. LAX-A-DAY [Concomitant]
     Active Substance: POLYETHYLENE GLYCOL 3350
     Indication: ADVERSE EVENT
     Dosage: 17 G, AS NECESSARY
     Route: 048
     Dates: start: 20200922

REACTIONS (1)
  - Blood creatine phosphokinase increased [Recovered/Resolved]

NARRATIVE: CASE EVENT DATE: 20201009
